FAERS Safety Report 14970585 (Version 3)
Quarter: 2018Q3

REPORT INFORMATION
  Report Type: Report from Study
  Country: IT (occurrence: IT)
  Receive Date: 20180604
  Receipt Date: 20180807
  Transmission Date: 20181010
  Serious: Yes (Hospitalization)
  Sender: FDA-Public Use
  Company Number: IT-PFIZER INC-2018221955

PATIENT
  Age: 57 Year
  Sex: Female

DRUGS (2)
  1. VALIUM [Suspect]
     Active Substance: DIAZEPAM
     Dosage: UNK
     Route: 048
  2. ALPRAZOLAM. [Suspect]
     Active Substance: ALPRAZOLAM
     Indication: ANXIETY
     Dosage: UNK
     Route: 048

REACTIONS (6)
  - Toxicity to various agents [Unknown]
  - Intentional self-injury [Unknown]
  - Gastritis erosive [Unknown]
  - Respiratory failure [Unknown]
  - Loss of consciousness [Unknown]
  - Coma [Unknown]

NARRATIVE: CASE EVENT DATE: 20151112
